FAERS Safety Report 11329194 (Version 1)
Quarter: 2015Q3

REPORT INFORMATION
  Report Type: Report from Study
  Country: CL (occurrence: CL)
  Receive Date: 20150803
  Receipt Date: 20150803
  Transmission Date: 20151125
  Serious: Yes (Hospitalization)
  Sender: FDA-Public Use
  Company Number: CL-ROCHE-1616034

PATIENT
  Age: 66 Year
  Sex: Female

DRUGS (1)
  1. XELODA [Suspect]
     Active Substance: CAPECITABINE
     Indication: COLORECTAL CANCER
     Dosage: 14 DAYS PER CYCLE
     Route: 048
     Dates: start: 20150519, end: 20150529

REACTIONS (15)
  - Malaise [Recovered/Resolved]
  - Drug dose omission [Unknown]
  - Blister [Recovered/Resolved]
  - Feeling cold [Recovered/Resolved]
  - Diverticulitis [Recovered/Resolved]
  - Diarrhoea [Recovered/Resolved]
  - Enteritis [Recovered/Resolved]
  - Muscle spasms [Recovered/Resolved]
  - Vomiting [Recovered/Resolved]
  - Nausea [Recovered/Resolved]
  - Skin discolouration [Not Recovered/Not Resolved]
  - Skin disorder [Recovered/Resolved]
  - Abdominal pain upper [Recovered/Resolved]
  - Pyrexia [Recovered/Resolved]
  - Paraesthesia [Recovered/Resolved]

NARRATIVE: CASE EVENT DATE: 20150522
